FAERS Safety Report 6458882-8 (Version None)
Quarter: 2009Q4

REPORT INFORMATION
  Report Type: 
  Country: None (occurrence: None)
  Receive Date: 20091127
  Receipt Date: 20091117
  Transmission Date: 20100525
  Serious: Yes (Other)
  Sender: FDA-Public Use
  Company Number: US-BAYER-200934298NA

PATIENT
  Age: 23 Year
  Sex: Female
  Weight: 52 kg

DRUGS (5)
  1. YAZ [Suspect]
     Indication: CONTRACEPTION
     Dates: start: 20070701, end: 20090911
  2. ZYRTEC [Concomitant]
     Route: 048
  3. SINGULAIR [Concomitant]
     Route: 048
  4. PROVENTIL [Concomitant]
     Route: 055
  5. VITAMIN AND MINERAL PRENATAL SUPPLEMENT W/ FOLIC ACID CAP [Concomitant]
     Route: 048
     Dates: start: 20090716

REACTIONS (1)
  - THROMBOPHLEBITIS SUPERFICIAL [None]
